FAERS Safety Report 22203673 (Version 1)
Quarter: 2023Q2

REPORT INFORMATION
  Report Type: Spontaneous
  Country: US (occurrence: US)
  Receive Date: 20230412
  Receipt Date: 20230412
  Transmission Date: 20230722
  Serious: No
  Sender: FDA-Public Use
  Company Number: US-JNJFOC-20190927697

PATIENT

DRUGS (2)
  1. IMODIUM [Suspect]
     Active Substance: LOPERAMIDE HYDROCHLORIDE
     Indication: Product used for unknown indication
     Route: 065
  2. LACTIC ACID [Concomitant]
     Active Substance: LACTIC ACID
     Indication: Product used for unknown indication
     Route: 065

REACTIONS (1)
  - Accidental exposure to product [Unknown]
